FAERS Safety Report 24551862 (Version 1)
Quarter: 2024Q4

REPORT INFORMATION
  Report Type: Spontaneous
  Country: CA (occurrence: CA)
  Receive Date: 20241026
  Receipt Date: 20241026
  Transmission Date: 20250114
  Serious: Yes (Hospitalization)
  Sender: ACCORD
  Company Number: None

PATIENT
  Age: 64 Year
  Sex: Female
  Weight: 55 kg

DRUGS (12)
  1. FLUOROURACIL [Suspect]
     Active Substance: FLUOROURACIL
     Indication: Anal cancer
  2. MITOMYCIN [Suspect]
     Active Substance: MITOMYCIN
     Indication: Anal cancer
     Dosage: POWDER FOR SOLUTION INTRAVESICULAR
  3. CALCIUM CARBONATE [Concomitant]
     Active Substance: CALCIUM CARBONATE
  4. DIMENHYDRINATE [Concomitant]
     Active Substance: DIMENHYDRINATE
     Dosage: LIQUID INTRAVENOUS
  5. HYDROCORTISONE [Concomitant]
     Active Substance: HYDROCORTISONE
  6. HYDROMORPHONE [Concomitant]
     Active Substance: HYDROMORPHONE
  7. LOPERAMIDE [Concomitant]
     Active Substance: LOPERAMIDE
  8. METRONIDAZOLE [Concomitant]
     Active Substance: METRONIDAZOLE
  9. ONDANSETRON [Concomitant]
     Active Substance: ONDANSETRON
  10. PREGABALIN [Concomitant]
     Active Substance: PREGABALIN
  11. PROCHLORPERAZINE [Concomitant]
     Active Substance: PROCHLORPERAZINE
  12. VITAMIN D3 [Concomitant]
     Active Substance: CHOLECALCIFEROL
     Dosage: 1000 IU

REACTIONS (2)
  - Cellulitis [Recovered/Resolved]
  - Febrile neutropenia [Recovered/Resolved]
